FAERS Safety Report 14160825 (Version 1)
Quarter: 2017Q4

REPORT INFORMATION
  Report Type: Report from Study
  Country: MX (occurrence: MX)
  Receive Date: 20171106
  Receipt Date: 20171106
  Transmission Date: 20180321
  Serious: Yes (Hospitalization, Other)
  Sender: FDA-Public Use
  Company Number: MX-ROCHE-2016986

PATIENT
  Age: 32 Year
  Sex: Female

DRUGS (2)
  1. HERCEPTIN [Suspect]
     Active Substance: TRASTUZUMAB
     Indication: HER-2 POSITIVE BREAST CANCER
     Dosage: 18 CYCLES
     Route: 065
  2. PACLITAXEL. [Concomitant]
     Active Substance: PACLITAXEL
     Indication: CHEMOTHERAPY
     Dosage: 4 CYCLES
     Route: 065

REACTIONS (5)
  - Nausea [Recovered/Resolved]
  - Osteoporosis [Unknown]
  - Medication error [Unknown]
  - Hyperthyroidism [Unknown]
  - Dengue fever [Recovered/Resolved]
